FAERS Safety Report 6766662 (Version 1)
Quarter: 2020Q3

REPORT INFORMATION
  Report Type: Report from Study
  Country: DE (occurrence: DE)
  Receive Date: 20080923
  Receipt Date: 20080923
  Transmission Date: 20201105
  Serious: Yes (Hospitalization, Other)
  Sender: FDA-Public Use
  Company Number: DE-ROCHE-585802

PATIENT
  Age: 73 Year
  Sex: Female
  Weight: 72.5 kg

DRUGS (2)
  1. IBANDRONIC ACID. [Suspect]
     Active Substance: IBANDRONIC ACID
     Indication: BREAST CANCER
     Dosage: ROUTE: 2
     Route: 042
     Dates: start: 20071217, end: 20080121
  2. CAPECITABINE. [Suspect]
     Active Substance: CAPECITABINE
     Indication: BREAST CANCER
     Dosage: GIVEN SPLITTED IN TWO DAILY DOSES ON DAYS 1?14 OF EACH THREE?WEEK?CYCLE. ROUTE: II
     Route: 048
     Dates: start: 20071217, end: 20080121

REACTIONS (2)
  - General physical health deterioration [Recovered/Resolved]
  - Palmar-plantar erythrodysaesthesia syndrome [Recovered/Resolved]

NARRATIVE: CASE EVENT DATE: 20080202
